FAERS Safety Report 5955573-4 (Version None)
Quarter: 2008Q4

REPORT INFORMATION
  Report Type: 
  Country: None (occurrence: None)
  Receive Date: 20081117
  Receipt Date: 20080711
  Transmission Date: 20090506
  Serious: Yes (Other)
  Sender: FDA-Public Use
  Company Number: US-PFIZER INC-2008059297

PATIENT
  Age: 50 Year
  Sex: Female
  Weight: 69.9 kg

DRUGS (1)
  1. CHANTIX [Suspect]
     Indication: SMOKING CESSATION THERAPY
     Route: 048
     Dates: start: 20080625, end: 20080707

REACTIONS (2)
  - DEPRESSION [None]
  - IMPAIRED WORK ABILITY [None]
